FAERS Safety Report 5968469-9 (Version None)
Quarter: 2008Q4

REPORT INFORMATION
  Report Type: 
  Country: None (occurrence: None)
  Receive Date: 20081121
  Receipt Date: 20081121
  Transmission Date: 20090506
  Serious: Yes (Other)
  Sender: FDA-Public Use
  Company Number: None

PATIENT
  Age: 34 Year
  Sex: Female
  Weight: 68.0396 kg

DRUGS (2)
  1. PROVENTIL-HFA [Suspect]
     Indication: ASTHMA
     Dosage: TWO PUFFS 2 TIMES A WEEK PO
     Route: 048
     Dates: start: 20081118, end: 20081118
  2. PROVENTIL-HFA [Suspect]
     Indication: ASTHMA
     Dosage: TWO PUFFS 2 TIMES A WEEK PO
     Route: 048
     Dates: start: 20081118, end: 20081118

REACTIONS (4)
  - ASTHMA [None]
  - CONDITION AGGRAVATED [None]
  - PANIC REACTION [None]
  - THERAPEUTIC RESPONSE UNEXPECTED WITH DRUG SUBSTITUTION [None]
